FAERS Safety Report 22153966 (Version 1)
Quarter: 2023Q1

REPORT INFORMATION
  Report Type: Spontaneous
  Country: CN (occurrence: CN)
  Receive Date: 20230330
  Receipt Date: 20230330
  Transmission Date: 20230418
  Serious: Yes (Death, Hospitalization, Other)
  Sender: FDA-Public Use
  Company Number: CN-JNJFOC-20230358497

PATIENT

DRUGS (1)
  1. IBRUTINIB [Suspect]
     Active Substance: IBRUTINIB
     Indication: Mantle cell lymphoma refractory
     Route: 048

REACTIONS (24)
  - Pneumonia fungal [Fatal]
  - Haemothorax [Recovering/Resolving]
  - Fatigue [Unknown]
  - Haemorrhage [Unknown]
  - Mouth ulceration [Recovering/Resolving]
  - Anaemia [Unknown]
  - Epistaxis [Recovering/Resolving]
  - Pruritus [Recovering/Resolving]
  - Liver function test abnormal [Unknown]
  - Lymphopenia [Unknown]
  - Rash [Recovering/Resolving]
  - Vomiting [Recovering/Resolving]
  - Haematological infection [Recovering/Resolving]
  - Leukopenia [Unknown]
  - Pleural effusion [Unknown]
  - Skin ulcer [Recovering/Resolving]
  - Thrombocytopenia [Unknown]
  - Blood potassium decreased [Unknown]
  - Paronychia [Recovering/Resolving]
  - Infection [Unknown]
  - Haemorrhage [Unknown]
  - Diarrhoea [Unknown]
  - Pneumonia [Recovering/Resolving]
  - Nausea [Recovering/Resolving]
